FAERS Safety Report 25605267 (Version 3)
Quarter: 2025Q3

REPORT INFORMATION
  Report Type: Report from Study
  Country: US (occurrence: US)
  Receive Date: 20250725
  Receipt Date: 20250912
  Transmission Date: 20251021
  Serious: No
  Sender: ACADIA PHARMACEUTICALS
  Company Number: US-ACADIA PHARMACEUTICALS INC.-ACA-2025-TRF-008470

PATIENT
  Sex: Female
  Weight: 39.9 kg

DRUGS (5)
  1. DAYBUE [Suspect]
     Active Substance: TROFINETIDE
     Indication: Rett syndrome
     Dosage: 45 MILLILITER, BID
     Dates: start: 202408
  2. DAYBUE [Suspect]
     Active Substance: TROFINETIDE
     Route: 065
  3. VIMPAT [Concomitant]
     Active Substance: LACOSAMIDE
     Dosage: 12.5 MILLILITER, BID
  4. KEPPRA [Concomitant]
     Active Substance: LEVETIRACETAM
     Dosage: 12.5 MILLIGRAM,BID
  5. FELBATOL [Concomitant]
     Active Substance: FELBAMATE
     Dosage: 3 MILLILITER, BID

REACTIONS (3)
  - Diarrhoea [Recovered/Resolved]
  - Diarrhoea [Unknown]
  - Therapeutic product effect incomplete [Recovering/Resolving]
